FAERS Safety Report 14321050 (Version 1)
Quarter: 2017Q4

REPORT INFORMATION
  Report Type: Spontaneous
  Country: CH (occurrence: CH)
  Receive Date: 20171223
  Receipt Date: 20171223
  Transmission Date: 20180321
  Serious: Yes (Other)
  Sender: FDA-Public Use
  Company Number: CH-CIPLA LTD.-2017CH23289

PATIENT

DRUGS (7)
  1. SPIRONOLACTONE. [Interacting]
     Active Substance: SPIRONOLACTONE
     Indication: DIURETIC THERAPY
     Dosage: 1.2 MG/KG/DAY
     Route: 048
  2. TEICOPLANIN [Concomitant]
     Active Substance: TEICOPLANIN
     Indication: ANTIBIOTIC THERAPY
     Dosage: UNK
     Route: 065
  3. MILRINONE [Concomitant]
     Active Substance: MILRINONE
     Dosage: 0.5 ?G/KG/MINUTE
     Route: 065
  4. FUROSEMIDE. [Concomitant]
     Active Substance: FUROSEMIDE
     Indication: DIURETIC THERAPY
     Dosage: 1.6-2.5 MG/KG/DAY
     Route: 048
  5. GENTAMICIN. [Concomitant]
     Active Substance: GENTAMICIN
     Indication: ANTIBIOTIC THERAPY
     Dosage: UNK
     Route: 065
  6. DIGOXIN. [Interacting]
     Active Substance: DIGOXIN
     Dosage: 3 ?G/KG/DAY
     Route: 065
  7. CARVEDILOL. [Suspect]
     Active Substance: CARVEDILOL
     Indication: BLOOD PRESSURE INCREASED
     Dosage: 0.08 MG/KG/DAY/HOUR
     Route: 065

REACTIONS (5)
  - Drug interaction [Unknown]
  - Atrioventricular block first degree [Recovered/Resolved]
  - Arrhythmia [Recovered/Resolved]
  - Atrioventricular block second degree [Recovered/Resolved]
  - Toxicity to various agents [Recovered/Resolved]
